FAERS Safety Report 17904791 (Version 1)
Quarter: 2020Q2

REPORT INFORMATION
  Report Type: Spontaneous
  Country: US (occurrence: US)
  Receive Date: 20200617
  Receipt Date: 20200617
  Transmission Date: 20200714
  Serious: No
  Sender: FDA-Public Use
  Company Number: US-ALLERGAN-1924324US

PATIENT
  Sex: Female
  Weight: 93.8 kg

DRUGS (21)
  1. BENTYL [Concomitant]
     Active Substance: DICYCLOMINE HYDROCHLORIDE
     Dosage: 1 DF, TID
     Route: 048
     Dates: start: 20161222
  2. CYMBALTA [Concomitant]
     Active Substance: DULOXETINE HYDROCHLORIDE
     Dosage: 30 MG, QD
     Route: 048
  3. MAG-OX [Concomitant]
     Active Substance: MAGNESIUM OXIDE
     Dosage: 4 TABLETS AM, 2 TABLETS AT LUNCH, 4 TABLETS PM
  4. MYCOPHENOLATE SODIUM [Concomitant]
     Active Substance: MYCOPHENOLATE SODIUM
     Dosage: 720 MG, BID
     Route: 048
  5. VITAMIN D3 [Concomitant]
     Active Substance: CHOLECALCIFEROL
     Dosage: EVERY 7 DAYS
     Route: 048
  6. ATIVAN [Concomitant]
     Active Substance: LORAZEPAM
     Indication: ANXIETY
     Dosage: 1 MG, Q12H, AS NEEDED
     Route: 048
  7. PROGRAF [Concomitant]
     Active Substance: TACROLIMUS
     Dosage: 0.5 MG, QHS
     Route: 048
  8. COLACE [Concomitant]
     Active Substance: DOCUSATE SODIUM
     Dosage: 1 DF, BID
     Route: 048
     Dates: start: 20160411, end: 20190322
  9. NORVASC [Concomitant]
     Active Substance: AMLODIPINE BESYLATE
     Dosage: 2.5 MG, QD
     Route: 048
  10. TAGAMET [Concomitant]
     Active Substance: CIMETIDINE
     Dosage: 400 MG, BID
     Route: 048
  11. NEURONTIN [Concomitant]
     Active Substance: GABAPENTIN
     Dosage: UNK, TID
     Route: 048
  12. MULTIPLE VITAMINS [Concomitant]
     Active Substance: VITAMINS
     Dosage: 1 DF, QD
     Route: 048
     Dates: start: 20090821
  13. BACTRIM DS, SEPTRA DS [Concomitant]
     Dosage: 1 TABLET ON MONDAY AND THURSDAYS
  14. OS-CAL CALCIUM + D3 [Concomitant]
     Dosage: 1 DF
     Route: 048
  15. LITHOBID [Concomitant]
     Active Substance: LITHIUM CARBONATE
     Dosage: 300 MG, TID
     Route: 048
     Dates: start: 20170509
  16. RIFAXIMIN. [Concomitant]
     Active Substance: RIFAXIMIN
     Dosage: 1 DF, TID
     Route: 048
     Dates: start: 20190322
  17. PROGRAF [Concomitant]
     Active Substance: TACROLIMUS
     Dosage: 2 UNK
     Route: 048
  18. VIBERZI [Suspect]
     Active Substance: ELUXADOLINE
     Indication: DIARRHOEA
     Dosage: 1 DF, SINGLE
     Route: 048
     Dates: start: 20190322, end: 20190322
  19. LUNESTA [Concomitant]
     Active Substance: ESZOPICLONE
     Dosage: 1 MG, QHS
     Route: 048
  20. PRILOSEC [Concomitant]
     Active Substance: OMEPRAZOLE MAGNESIUM
     Dosage: 1 DF, BID
     Route: 048
  21. PROGRAF [Concomitant]
     Active Substance: TACROLIMUS
     Dosage: 3 MG, QD
     Route: 048

REACTIONS (2)
  - Contraindicated product administered [Unknown]
  - Drug ineffective [Unknown]
